FAERS Safety Report 11728338 (Version 1)
Quarter: 2015Q4

REPORT INFORMATION
  Report Type: Spontaneous
  Country: US (occurrence: US)
  Receive Date: 20151110
  Receipt Date: 20151110
  Transmission Date: 20160304
  Serious: No
  Sender: FDA-Public Use
  Company Number: US-ELI_LILLY_AND_COMPANY-US201110001401

PATIENT
  Age: 68 Year
  Sex: Female

DRUGS (5)
  1. FORTEO [Suspect]
     Active Substance: TERIPARATIDE
     Dosage: 20 UG, QD
     Dates: end: 20111015
  2. FORTEO [Suspect]
     Active Substance: TERIPARATIDE
     Indication: OSTEOPOROSIS
     Dosage: 20 UG, QD
     Dates: start: 20111003
  3. FLECTOR                            /00372302/ [Concomitant]
     Active Substance: DICLOFENAC SODIUM
  4. FENTANYL. [Concomitant]
     Active Substance: FENTANYL
  5. CELEBREX [Concomitant]
     Active Substance: CELECOXIB
     Dosage: 400 MG, QD

REACTIONS (12)
  - Ear disorder [Unknown]
  - Arthralgia [Unknown]
  - Dizziness [Unknown]
  - Depression [Unknown]
  - Head discomfort [Unknown]
  - Peripheral swelling [Unknown]
  - Hypoaesthesia [Unknown]
  - Injection site pain [Unknown]
  - Dysuria [Unknown]
  - Musculoskeletal pain [Recovering/Resolving]
  - Neck pain [Recovering/Resolving]
  - Nausea [Recovered/Resolved]

NARRATIVE: CASE EVENT DATE: 20111004
